FAERS Safety Report 13906156 (Version 1)
Quarter: 2017Q3

REPORT INFORMATION
  Report Type: Spontaneous
  Country: US (occurrence: None)
  Receive Date: 20170822
  Receipt Date: 20170822
  Transmission Date: 20171127
  Serious: Yes (Hospitalization)
  Sender: FDA-Public Use
  Company Number: None

PATIENT
  Age: 70 Year
  Sex: Male
  Weight: 100.4 kg

DRUGS (15)
  1. STIVARGA [Suspect]
     Active Substance: REGORAFENIB
     Indication: RECTAL CANCER
     Route: 048
     Dates: start: 20170809, end: 20170817
  2. GLUCOSAMINE [Concomitant]
     Active Substance: GLUCOSAMINE
  3. CALCIPOTRIENE. [Concomitant]
     Active Substance: CALCIPOTRIENE
  4. IBUPROFEN. [Concomitant]
     Active Substance: IBUPROFEN
  5. LORATADINE. [Concomitant]
     Active Substance: LORATADINE
  6. PROCHLORPERAZINE. [Concomitant]
     Active Substance: PROCHLORPERAZINE
  7. SERTRALINE [Concomitant]
     Active Substance: SERTRALINE HYDROCHLORIDE
  8. LEVOTHYROXINE. [Concomitant]
     Active Substance: LEVOTHYROXINE
  9. MULTI VITAMIN [Concomitant]
     Active Substance: VITAMINS
  10. CHOLECALCIFEROL [Concomitant]
     Active Substance: CHOLECALCIFEROL
  11. DILTIAZEM. [Concomitant]
     Active Substance: DILTIAZEM
  12. FLUTICASONE. [Concomitant]
     Active Substance: FLUTICASONE
  13. LORAZEPAM. [Concomitant]
     Active Substance: LORAZEPAM
  14. ACYCLOVIR. [Concomitant]
     Active Substance: ACYCLOVIR
  15. CALCIUM CARBONATE. [Concomitant]
     Active Substance: CALCIUM CARBONATE

REACTIONS (5)
  - Dehydration [None]
  - Vomiting [None]
  - Infection [None]
  - Nausea [None]
  - Road traffic accident [None]

NARRATIVE: CASE EVENT DATE: 20170817
